FAERS Safety Report 9292420 (Version 2)
Quarter: 2013Q2

REPORT INFORMATION
  Report Type: Report from Study
  Country: NO (occurrence: NO)
  Receive Date: 20130516
  Receipt Date: 20130529
  Transmission Date: 20140414
  Serious: Yes (Hospitalization)
  Sender: FDA-Public Use
  Company Number: NO-SANOFI-AVENTIS-2013SA047082

PATIENT
  Age: 77 Year
  Sex: 0

DRUGS (3)
  1. CABAZITAXEL [Suspect]
     Indication: PROSTATE CANCER
     Route: 042
  2. CABAZITAXEL [Suspect]
     Indication: PROSTATE CANCER
     Route: 042
     Dates: start: 20130503, end: 20130503
  3. PREDNISONE [Suspect]
     Indication: PROSTATE CANCER
     Route: 048

REACTIONS (1)
  - C-reactive protein increased [Recovered/Resolved]
